FAERS Safety Report 21063543 (Version 1)
Quarter: 2022Q3

REPORT INFORMATION
  Report Type: Spontaneous
  Country: JP (occurrence: JP)
  Receive Date: 20220711
  Receipt Date: 20220711
  Transmission Date: 20221027
  Serious: Yes (Other)
  Sender: FDA-Public Use
  Company Number: JP-CHUGAI-2022025706

PATIENT
  Sex: Female

DRUGS (2)
  1. PERJETA [Suspect]
     Active Substance: PERTUZUMAB
     Indication: Breast cancer
     Dosage: UNK, ONCE/3WEEKS, FORM STRENGTH: 420MG/14ML
     Route: 041
  2. HERCEPTIN [Suspect]
     Active Substance: TRASTUZUMAB
     Indication: Breast cancer
     Dosage: UNK, ONCE/3WEEKS
     Route: 041

REACTIONS (1)
  - Cardiac dysfunction [Recovering/Resolving]
